FAERS Safety Report 15928628 (Version 4)
Quarter: 2019Q3

REPORT INFORMATION
  Report Type: Report from Study
  Country: JP (occurrence: JP)
  Receive Date: 20190206
  Receipt Date: 20190701
  Transmission Date: 20191004
  Serious: Yes (Life-Threatening)
  Sender: FDA-Public Use
  Company Number: JP-PFIZER INC-2019052037

PATIENT
  Age: 75 Year
  Sex: Female
  Weight: 36.5 kg

DRUGS (11)
  1. XELJANZ [Suspect]
     Active Substance: TOFACITINIB CITRATE
     Indication: RHEUMATOID ARTHRITIS
     Dosage: 5 MG, 1X/DAY
     Route: 048
     Dates: start: 20160113, end: 20170801
  2. EDIROL [Concomitant]
     Active Substance: ELDECALCITOL
     Dosage: 0.75 UG, 1X/DAY; WITHIN 30 MINUTES AFTER BREAKFAST (OR AT SOME OTHER TIME OF A DAY)
     Route: 048
  3. METHOTREXATE SODIUM. [Suspect]
     Active Substance: METHOTREXATE SODIUM
     Dosage: 10 MG, WEEKLY
     Route: 048
     Dates: start: 20170927, end: 20181120
  4. FUROSEMIDE. [Concomitant]
     Active Substance: FUROSEMIDE
     Dosage: 10 MG, DAILY
  5. FOLIAMIN [Concomitant]
     Active Substance: FOLIC ACID
     Dosage: 5 MG, WEEKLY; ON EVERY WEDNESDAY (WITHIN 30 MINUTES AFTER BREAKFAST)
     Route: 048
  6. GLAKAY [Concomitant]
     Active Substance: MENATETRENONE
     Dosage: 15 MG, 3X/DAY; EACH WITHIN 30 MINUTES AFTER BREAKFAST, LUNCH, AND SUPPER
     Route: 048
  7. RECALBON [MINODRONIC ACID] [Concomitant]
     Active Substance: MINODRONIC ACID
     Dosage: 50 MG, MONTHLY
  8. METHOTREXATE SODIUM. [Suspect]
     Active Substance: METHOTREXATE SODIUM
     Indication: RHEUMATOID ARTHRITIS
     Dosage: 16 MG, WEEKLY
     Route: 048
     Dates: start: 2001, end: 20160113
  9. METHOTREXATE SODIUM. [Suspect]
     Active Substance: METHOTREXATE SODIUM
     Dosage: 14 MG, WEEKLY (8 MG WITHIN 30 MINUTES AFTER BREAKFAST AND 6 MG WITHIN 30 MINUTES AFTER SUPPER)
     Route: 048
     Dates: start: 20160406, end: 20170926
  10. MAGMITT [Concomitant]
     Active Substance: MAGNESIUM OXIDE
     Dosage: 250 MG, 3X/DAY; (OR AT A REDUCED DOSE) EACH WITHIN 30 MINUTES AFTER BREAKFAST, LUNCH, AND SUPPER
  11. BAYASPIRIN [Concomitant]
     Active Substance: ASPIRIN
     Dosage: 100 MG, 1X/DAY; WITHIN 30 MINUTES AFTER BREAKFAST
     Route: 048

REACTIONS (1)
  - Gastric cancer [Not Recovered/Not Resolved]

NARRATIVE: CASE EVENT DATE: 201811
